FAERS Safety Report 10046780 (Version 2)
Quarter: 2014Q2

REPORT INFORMATION
  Report Type: Spontaneous
  Country: JP (occurrence: JP)
  Receive Date: 20140331
  Receipt Date: 20140522
  Transmission Date: 20141212
  Serious: Yes (Disabling, Other)
  Sender: FDA-Public Use
  Company Number: PHHY2014JP038058

PATIENT
  Age: 93 Year
  Sex: Female

DRUGS (13)
  1. BETANIS [Concomitant]
     Indication: POLLAKIURIA
     Dosage: 50 MG, UNK
     Route: 048
     Dates: end: 20131009
  2. MAGMITT [Concomitant]
     Indication: CONSTIPATION
     Dosage: 660 MG, UNK
     Route: 048
  3. GASCON [Concomitant]
     Indication: CONSTIPATION
     Dosage: 40 MG, UNK
     Route: 048
  4. CARLSTERIN [Concomitant]
     Indication: ANAL PROLAPSE
     Dosage: 30 MG, UNK
     Route: 061
  5. EURODIN [Concomitant]
     Indication: INSOMNIA
     Dosage: 1 MG, DAILY
     Route: 048
     Dates: start: 20131017
  6. LENDORMIN [Concomitant]
     Dosage: 0.25 MG, UNK
     Dates: start: 20130919, end: 20131009
  7. BENZALIN [Concomitant]
     Indication: INSOMNIA
     Dosage: 5 MG, UNK
     Dates: start: 20131010, end: 20131016
  8. RIVASTIGMINE [Suspect]
     Indication: DEMENTIA ALZHEIMER^S TYPE
     Dosage: 4.5 MG, DIALY
     Route: 062
     Dates: start: 20130919, end: 20131016
  9. RIVASTIGMINE [Suspect]
     Dosage: 9 MG, DAILY
     Route: 062
     Dates: start: 20131017, end: 20131029
  10. SEROQUEL [Concomitant]
     Indication: RESTLESSNESS
     Dosage: 25 MG, UNK
     Route: 048
     Dates: start: 20130919, end: 20131029
  11. RISPERDAL [Concomitant]
     Indication: RESTLESSNESS
     Dosage: 1 MG, UNK
     Route: 048
     Dates: start: 20130919, end: 20131029
  12. RISPERDAL [Concomitant]
     Dosage: UNK UKN, UNK
     Route: 048
     Dates: start: 20131031
  13. BUP-4 [Concomitant]
     Indication: POLLAKIURIA
     Dosage: 20 MG, UNK
     Route: 048
     Dates: end: 20131009

REACTIONS (6)
  - Dropped head syndrome [Recovering/Resolving]
  - Kyphosis [Recovering/Resolving]
  - Dementia Alzheimer^s type [Unknown]
  - Hypophagia [Recovering/Resolving]
  - Restlessness [Unknown]
  - Off label use [Unknown]
